FAERS Safety Report 4533532-6 (Version None)
Quarter: 2004Q4

REPORT INFORMATION
  Report Type: 
  Country: None (occurrence: None)
  Receive Date: 20041221
  Receipt Date: 20041209
  Transmission Date: 20050328
  Serious: Yes (Hospitalization)
  Sender: FDA-Public Use
  Company Number: JP-JNJFOC-20041202589

PATIENT
  Age: 36 Year
  Sex: Female

DRUGS (8)
  1. OFLOCET [Suspect]
     Indication: BRONCHITIS
     Route: 042
     Dates: start: 20040730, end: 20040812
  2. XENAZINE [Suspect]
     Indication: HUNTINGTON'S CHOREA
     Route: 049
     Dates: start: 20020220, end: 20040803
  3. ROCEPHIN [Suspect]
     Indication: BRONCHITIS
     Route: 042
     Dates: start: 20040730, end: 20040812
  4. THERALENE [Concomitant]
     Route: 049
  5. SERESTA [Concomitant]
     Route: 049
  6. OMEPRAZOLE [Concomitant]
     Route: 049
  7. NORETHINDRONE ACETATE [Concomitant]
  8. PARACETAMOL [Concomitant]

REACTIONS (5)
  - ABSCESS [None]
  - BLOOD CREATINE PHOSPHOKINASE INCREASED [None]
  - BLOOD LACTATE DEHYDROGENASE INCREASED [None]
  - CYST [None]
  - RED BLOOD CELL SEDIMENTATION RATE INCREASED [None]
